FAERS Safety Report 16587570 (Version 4)
Quarter: 2019Q3

REPORT INFORMATION
  Report Type: Spontaneous
  Country: US (occurrence: US)
  Receive Date: 20190717
  Receipt Date: 20190913
  Transmission Date: 20191004
  Serious: No
  Sender: FDA-Public Use
  Company Number: US-JNJFOC-20190717422

PATIENT
  Age: 41 Year
  Sex: Female
  Weight: 81.72 kg

DRUGS (4)
  1. STELARA [Suspect]
     Active Substance: USTEKINUMAB
     Indication: PSORIASIS
     Route: 058
     Dates: start: 201812
  2. ESTROGEN [Concomitant]
     Active Substance: ESTROGENS
  3. METHOTREXATE. [Concomitant]
     Active Substance: METHOTREXATE
  4. STELARA [Suspect]
     Active Substance: USTEKINUMAB
     Indication: PSORIATIC ARTHROPATHY

REACTIONS (4)
  - Needle issue [Unknown]
  - Accidental exposure to product [Recovered/Resolved]
  - Product dose omission [Unknown]
  - Syringe issue [Unknown]

NARRATIVE: CASE EVENT DATE: 201907
